FAERS Safety Report 13184334 (Version 1)
Quarter: 2017Q1

REPORT INFORMATION
  Report Type: Spontaneous
  Country: US (occurrence: US)
  Receive Date: 20170203
  Receipt Date: 20170203
  Transmission Date: 20170428
  Serious: No
  Sender: FDA-Public Use
  Company Number: None

PATIENT
  Age: 33 Year
  Sex: Male
  Weight: 108.3 kg

DRUGS (1)
  1. MECLIZINE [Suspect]
     Active Substance: MECLIZINE HYDROCHLORIDE
     Indication: DIZZINESS
     Route: 048
     Dates: start: 20170106, end: 20170117

REACTIONS (5)
  - Hypoaesthesia [None]
  - Dizziness [None]
  - Pharyngeal oedema [None]
  - Nausea [None]
  - Anaphylactic reaction [None]

NARRATIVE: CASE EVENT DATE: 20170117
